FAERS Safety Report 6540751-6 (Version None)
Quarter: 2010Q1

REPORT INFORMATION
  Report Type: 
  Country: None (occurrence: None)
  Receive Date: 20100118
  Receipt Date: 20100106
  Transmission Date: 20100710
  Serious: Yes (Other)
  Sender: FDA-Public Use
  Company Number: JP-NOVOPROD-302910

PATIENT
  Age: 75 Year
  Sex: Male

DRUGS (4)
  1. LEVEMIR CHU PENFILL [Suspect]
     Indication: DIABETES MELLITUS
     Dosage: /SC
     Route: 058
  2. NOVORAPID CHU PENFILL [Suspect]
     Indication: DIABETES MELLITUS
     Dosage: /SC
     Route: 058
  3. NOVOLIN R [Suspect]
     Indication: DIABETES MELLITUS
     Dosage: /SC
     Route: 058
  4. LANTUS [Concomitant]

REACTIONS (4)
  - DIABETES MELLITUS INADEQUATE CONTROL [None]
  - INJECTION SITE INDURATION [None]
  - INJECTION SITE PRURITUS [None]
  - INJECTION SITE REACTION [None]
